FAERS Safety Report 11299100 (Version 1)
Quarter: 2015Q3

REPORT INFORMATION
  Report Type: Spontaneous
  Country: US (occurrence: US)
  Receive Date: 20150722
  Receipt Date: 20150722
  Transmission Date: 20151125
  Serious: No
  Sender: FDA-Public Use
  Company Number: US-ELI_LILLY_AND_COMPANY-US201207002754

PATIENT
  Age: 74 Year
  Sex: Female

DRUGS (1)
  1. EVISTA [Suspect]
     Active Substance: RALOXIFENE HYDROCHLORIDE
     Indication: OSTEOPENIA
     Dosage: UNK, QD
     Route: 065
     Dates: start: 20120609, end: 20120625

REACTIONS (7)
  - Influenza like illness [Unknown]
  - Dysarthria [Unknown]
  - Muscle spasms [Unknown]
  - Vision blurred [Recovering/Resolving]
  - Hypersensitivity [Unknown]
  - Pruritus [Recovered/Resolved]
  - Anxiety [Unknown]
